FAERS Safety Report 9850860 (Version 1)
Quarter: 2014Q1

REPORT INFORMATION
  Report Type: Spontaneous
  Country: US (occurrence: US)
  Receive Date: 20140128
  Receipt Date: 20140128
  Transmission Date: 20141002
  Serious: Yes (Other)
  Sender: FDA-Public Use
  Company Number: US-BAYER-2014-014115

PATIENT
  Age: 76 Year
  Sex: Male

DRUGS (1)
  1. STIVARGA [Suspect]
     Indication: COLON CANCER
     Dosage: 120 MG, QD X 21 DAYS
     Route: 048
     Dates: start: 20131126, end: 20131214

REACTIONS (4)
  - Aphagia [None]
  - Asthenia [None]
  - Dizziness [None]
  - Blister [None]
